FAERS Safety Report 14289921 (Version 1)
Quarter: 2017Q4

REPORT INFORMATION
  Report Type: Spontaneous
  Country: US (occurrence: US)
  Receive Date: 20171215
  Receipt Date: 20171215
  Transmission Date: 20180321
  Serious: No
  Sender: FDA-Public Use
  Company Number: US-ALVOGEN-2017-ALVOGEN-093434

PATIENT
  Age: 75 Year
  Sex: Female
  Weight: 48.64 kg

DRUGS (6)
  1. BUDESONIDE. [Suspect]
     Active Substance: BUDESONIDE
     Indication: DIARRHOEA
     Route: 048
  2. BUDESONIDE. [Suspect]
     Active Substance: BUDESONIDE
     Indication: DIARRHOEA
     Route: 048
     Dates: start: 20170519
  3. BUDESONIDE. [Suspect]
     Active Substance: BUDESONIDE
     Indication: DIARRHOEA
     Route: 048
  4. BUDESONIDE. [Suspect]
     Active Substance: BUDESONIDE
     Indication: ABDOMINAL PAIN UPPER
     Route: 048
  5. BUDESONIDE. [Suspect]
     Active Substance: BUDESONIDE
     Indication: ABDOMINAL PAIN UPPER
     Route: 048
  6. BUDESONIDE. [Suspect]
     Active Substance: BUDESONIDE
     Indication: ABDOMINAL PAIN UPPER
     Route: 048
     Dates: start: 20170519

REACTIONS (3)
  - Oedema peripheral [Recovered/Resolved]
  - Drug hypersensitivity [Recovered/Resolved]
  - Mouth swelling [Recovered/Resolved]

NARRATIVE: CASE EVENT DATE: 201705
